FAERS Safety Report 9229542 (Version 2)
Quarter: 2013Q2

REPORT INFORMATION
  Report Type: Spontaneous
  Country: NL (occurrence: NL)
  Receive Date: 20130413
  Receipt Date: 20130517
  Transmission Date: 20140414
  Serious: Yes (Hospitalization)
  Sender: FDA-Public Use
  Company Number: NL-AMGEN-NLDSP2013025521

PATIENT
  Age: 63 Year
  Sex: Female

DRUGS (1)
  1. ENBREL [Suspect]
     Indication: RHEUMATOID ARTHRITIS
     Dosage: 50 MG, WEEKLY
     Dates: start: 20090701

REACTIONS (5)
  - Syncope [Recovering/Resolving]
  - Dehydration [Recovering/Resolving]
  - Hypotension [Recovering/Resolving]
  - C-reactive protein increased [Recovering/Resolving]
  - Pneumonia [Recovering/Resolving]
